FAERS Safety Report 15144197 (Version 1)
Quarter: 2018Q3

REPORT INFORMATION
  Report Type: Spontaneous
  Country: US (occurrence: US)
  Receive Date: 20180713
  Receipt Date: 20180713
  Transmission Date: 20181010
  Serious: No
  Sender: FDA-Public Use
  Company Number: US-NOVOPROD-596104

PATIENT
  Age: 48 Year
  Sex: Female
  Weight: 85.26 kg

DRUGS (1)
  1. FIASP [Suspect]
     Active Substance: INSULIN ASPART
     Indication: TYPE 1 DIABETES MELLITUS
     Dosage: UNK
     Route: 058
     Dates: start: 20180331, end: 20180407

REACTIONS (11)
  - Fatigue [Recovered/Resolved]
  - Chest discomfort [Recovered/Resolved]
  - Infusion site haemorrhage [Recovered/Resolved]
  - Palpitations [Recovered/Resolved]
  - Irritability [Recovered/Resolved]
  - Rhinorrhoea [Recovered/Resolved]
  - Wrong technique in product usage process [Recovered/Resolved]
  - Presyncope [Recovered/Resolved]
  - Infusion site erythema [Recovered/Resolved]
  - Infusion site irritation [Recovered/Resolved]
  - Dizziness [Recovered/Resolved]

NARRATIVE: CASE EVENT DATE: 20180331
